FAERS Safety Report 8590754-5 (Version None)
Quarter: 2012Q3

REPORT INFORMATION
  Report Type: 
  Country: None (occurrence: None)
  Receive Date: 20120813
  Receipt Date: 20120801
  Transmission Date: 20120928
  Serious: Yes (Hospitalization, Other)
  Sender: FDA-Public Use
  Company Number: US-009507513-1201USA00753

PATIENT

DRUGS (2)
  1. FOSAMAX [Suspect]
     Indication: OSTEOPENIA
     Dosage: 10 MG, QD
     Route: 048
     Dates: start: 19990101
  2. FOSAMAX [Suspect]
     Indication: OSTEOPOROSIS
     Dosage: 70 MG, UNK
     Route: 048
     Dates: start: 20000101, end: 20080720

REACTIONS (38)
  - LUMBAR SPINAL STENOSIS [None]
  - FEMUR FRACTURE [None]
  - ANXIETY [None]
  - HELICOBACTER TEST POSITIVE [None]
  - HAND FRACTURE [None]
  - ARTHRITIS [None]
  - GASTROOESOPHAGITIS [None]
  - LIVER FUNCTION TEST ABNORMAL [None]
  - PYREXIA [None]
  - ALANINE AMINOTRANSFERASE INCREASED [None]
  - BRONCHITIS [None]
  - RETINAL DISORDER [None]
  - VISUAL ACUITY REDUCED [None]
  - NERVOUSNESS [None]
  - ARTHROPOD BITE [None]
  - NODULE [None]
  - POST PROCEDURAL HAEMORRHAGE [None]
  - PEPTIC ULCER [None]
  - SPONDYLOLISTHESIS [None]
  - OSTEOARTHRITIS [None]
  - CYST [None]
  - FOOT FRACTURE [None]
  - INFECTION [None]
  - ELECTROCARDIOGRAM ST SEGMENT [None]
  - ANAEMIA [None]
  - LOW TURNOVER OSTEOPATHY [None]
  - HYPERTENSION [None]
  - LUMBAR RADICULOPATHY [None]
  - SPINAL OSTEOARTHRITIS [None]
  - THERMAL BURN [None]
  - DYSPEPSIA [None]
  - GASTROOESOPHAGEAL REFLUX DISEASE [None]
  - ARTHRODESIS [None]
  - HYPERCHOLESTEROLAEMIA [None]
  - APPENDIX DISORDER [None]
  - CONJUNCTIVITIS INFECTIVE [None]
  - HERPES ZOSTER [None]
  - MUSCLE SPASMS [None]
